FAERS Safety Report 7449849-1 (Version None)
Quarter: 2011Q2

REPORT INFORMATION
  Report Type: 
  Country: None (occurrence: None)
  Receive Date: 20110502
  Receipt Date: 20110318
  Transmission Date: 20111010
  Serious: Yes (Hospitalization, Other)
  Sender: FDA-Public Use
  Company Number: US-BAYER-201031843NA

PATIENT
  Age: 31 Year
  Sex: Female
  Weight: 74.83 kg

DRUGS (2)
  1. YASMIN [Suspect]
     Indication: ORAL CONTRACEPTION
     Dosage: UNK UNK, QD
     Route: 048
  2. ZANTAC [Concomitant]
     Route: 048

REACTIONS (10)
  - CHOLELITHIASIS [None]
  - DYSPEPSIA [None]
  - CONSTIPATION [None]
  - ANXIETY [None]
  - ABDOMINAL DISTENSION [None]
  - CHOLECYSTITIS CHRONIC [None]
  - FLATULENCE [None]
  - DIARRHOEA [None]
  - DEPRESSION [None]
  - CHOLECYSTECTOMY [None]
